FAERS Safety Report 8533939-6 (Version None)
Quarter: 2012Q3

REPORT INFORMATION
  Report Type: 
  Country: None (occurrence: None)
  Receive Date: 20120705
  Receipt Date: 20120626
  Transmission Date: 20120928
  Serious: Yes (Hospitalization)
  Sender: FDA-Public Use
  Company Number: 003-079

PATIENT
  Age: 30 Year
  Sex: Female

DRUGS (2)
  1. CROFAB [Suspect]
     Indication: SNAKE BITE
     Dosage: 14 VIALS TOTAL
     Dates: start: 20120619
  2. ... [Concomitant]

REACTIONS (6)
  - PROTHROMBIN TIME PROLONGED [None]
  - OEDEMA PERIPHERAL [None]
  - INTERNATIONAL NORMALISED RATIO INCREASED [None]
  - BLOOD PRESSURE DECREASED [None]
  - CONTUSION [None]
  - SENSORY LOSS [None]
